FAERS Safety Report 4765680-X (Version None)
Quarter: 2005Q3

REPORT INFORMATION
  Report Type: 
  Country: None (occurrence: None)
  Receive Date: 20050906
  Receipt Date: 20050829
  Transmission Date: 20060218
  Serious: Yes (Hospitalization)
  Sender: FDA-Public Use
  Company Number: 2005-06-1590

PATIENT
  Age: 48 Year
  Sex: Male
  Weight: 67 kg

DRUGS (8)
  1. PEG-INTRON [Suspect]
     Indication: HEPATITIS C
     Dosage: 100 MCG QW SUBCUTANEOUS
     Route: 058
     Dates: start: 20050201, end: 20050420
  2. REBETOL [Suspect]
     Indication: HEPATITIS C
     Dosage: 800-600MG MG ORAL
     Route: 048
     Dates: start: 20050201, end: 20050426
  3. URSO TABLETS [Concomitant]
  4. LASIX [Concomitant]
  5. RYTHMODAN TABLETS [Concomitant]
  6. DIGOXIN [Concomitant]
  7. ADALAT [Concomitant]
  8. ISOSORBIDE MONONITRATE TABLETS [Concomitant]

REACTIONS (5)
  - CARDIAC FAILURE [None]
  - CONDITION AGGRAVATED [None]
  - ERYTHEMA NODOSUM [None]
  - OEDEMA PERIPHERAL [None]
  - PYREXIA [None]
